FAERS Safety Report 8761172 (Version 1)
Quarter: 2012Q4

REPORT INFORMATION
  Report Type: 
  Country: FR (occurrence: FR)
  Receive Date: 20120830
  Receipt Date: 20120830
  Transmission Date: 20130627
  Serious: Yes (Hospitalization)
  Sender: FDA-Public Use
  Company Number: FR-GE HEALTHCARE MEDICAL DIAGNOSTICS-OMPQ-NO-1208S-0879

PATIENT
  Age: 0 Year
  Sex: Female
  Weight: 1.68 kg

DRUGS (25)
  1. OMNIPAQUE [Suspect]
     Indication: PRODUCT USED FOR UNKNOWN INDICATION
     Dosage: dose not reported
     Route: 048
     Dates: start: 20090723, end: 20090723
  2. OMNIPAQUE [Suspect]
     Dosage: dose not reported
     Dates: start: 20091204, end: 20091204
  3. VANCOMYCIN [Suspect]
     Route: 042
     Dates: start: 20090717, end: 20090722
  4. VANCOMYCIN [Suspect]
     Route: 042
     Dates: start: 20090817, end: 20090826
  5. VANCOMYCIN [Suspect]
     Route: 042
     Dates: start: 20090909, end: 20090914
  6. VANCOMYCIN [Suspect]
     Route: 042
     Dates: start: 20091102, end: 20091104
  7. VANCOMYCIN [Suspect]
     Route: 042
     Dates: start: 20091116, end: 20091121
  8. CLAFORAN [Concomitant]
  9. GENTALLINE [Concomitant]
  10. TIBERAL [Concomitant]
  11. CLAMOXYL [Concomitant]
  12. AMIKLIN [Concomitant]
  13. CIFLOX [Concomitant]
  14. TAZOCILLINE [Concomitant]
  15. LASILIX [Concomitant]
  16. DOBUTAMINE [Concomitant]
  17. LOPRIL [Concomitant]
  18. DEBRIDAT [Concomitant]
  19. SPASFON [Concomitant]
  20. URSOLVAN [Concomitant]
  21. SUFENTA [Concomitant]
  22. ATARAX [Concomitant]
  23. PARACETAMOL [Concomitant]
  24. MORPHINE [Concomitant]
  25. NUBAIN [Concomitant]

REACTIONS (1)
  - Eosinophilia [Recovered/Resolved]
